FAERS Safety Report 17172877 (Version 2)
Quarter: 2020Q1

REPORT INFORMATION
  Report Type: Spontaneous
  Country: US (occurrence: US)
  Receive Date: 20191219
  Receipt Date: 20200130
  Transmission Date: 20200409
  Serious: Yes (Hospitalization)
  Sender: FDA-Public Use
  Company Number: US-RECORDATI RARE DISEASES-2078008

PATIENT
  Sex: Male
  Weight: 88.18 kg

DRUGS (7)
  1. CYSTADANE [Suspect]
     Active Substance: BETAINE
     Indication: PRODUCT USED FOR UNKNOWN INDICATION
  2. MONTELUKAST [Concomitant]
     Active Substance: MONTELUKAST SODIUM
  3. ADVAIR HFA [Concomitant]
     Active Substance: FLUTICASONE PROPIONATE\SALMETEROL XINAFOATE
  4. ATORVASTATIN [Concomitant]
     Active Substance: ATORVASTATIN
  5. XARELTO [Concomitant]
     Active Substance: RIVAROXABAN
  6. FOLIC ACID. [Concomitant]
     Active Substance: FOLIC ACID
  7. TYLENOL [Concomitant]
     Active Substance: ACETAMINOPHEN

REACTIONS (6)
  - Speech disorder [Unknown]
  - Product dose omission [Unknown]
  - Blood homocysteine increased [Unknown]
  - Cerebrovascular accident [Unknown]
  - Inappropriate schedule of product administration [Unknown]
  - Memory impairment [Unknown]
